FAERS Safety Report 25192015 (Version 2)
Quarter: 2025Q2

REPORT INFORMATION
  Report Type: Report from Study
  Country: CO (occurrence: CO)
  Receive Date: 20250414
  Receipt Date: 20250514
  Transmission Date: 20250717
  Serious: Yes (Hospitalization, Disabling, Other)
  Sender: AMGEN
  Company Number: CO-AMGEN-COLSL2023200451

PATIENT
  Age: 55 Year
  Sex: Male

DRUGS (2)
  1. VECTIBIX [Suspect]
     Active Substance: PANITUMUMAB
     Indication: Colorectal cancer metastatic
     Dosage: 374 MILLIGRAM, QWK
     Route: 042
     Dates: start: 20231024
  2. VECTIBIX [Suspect]
     Active Substance: PANITUMUMAB
     Dosage: 374 MILLIGRAM, Q2WK
     Route: 042
     Dates: end: 20250226

REACTIONS (10)
  - Colorectal cancer metastatic [Not Recovered/Not Resolved]
  - Syncope [Not Recovered/Not Resolved]
  - Intestinal obstruction [Not Recovered/Not Resolved]
  - Dizziness [Not Recovered/Not Resolved]
  - Skin burning sensation [Not Recovered/Not Resolved]
  - Rash [Not Recovered/Not Resolved]
  - Dry skin [Not Recovered/Not Resolved]
  - Dermatitis acneiform [Not Recovered/Not Resolved]
  - Pruritus [Not Recovered/Not Resolved]
  - Off label use [Unknown]

NARRATIVE: CASE EVENT DATE: 20231024
